FAERS Safety Report 15221429 (Version 1)
Quarter: 2018Q3

REPORT INFORMATION
  Report Type: Spontaneous
  Country: IT (occurrence: IT)
  Receive Date: 20180731
  Receipt Date: 20180731
  Transmission Date: 20181010
  Serious: Yes (Hospitalization)
  Sender: FDA-Public Use
  Company Number: IT-PFIZER INC-2018302809

PATIENT
  Age: 44 Year
  Sex: Female

DRUGS (2)
  1. DIFMETRE [Suspect]
     Active Substance: CAFFEINE\INDOMETHACIN\PROCHLORPERAZINE MALEATE
     Dosage: 5 DF, UNK (TOTAL)
     Route: 054
     Dates: start: 20180609, end: 20180609
  2. XANAX [Suspect]
     Active Substance: ALPRAZOLAM
     Dosage: 7 DF, UNK (TOTAL)
     Route: 048
     Dates: start: 20180609, end: 20180609

REACTIONS (3)
  - Suicide attempt [Recovered/Resolved]
  - Psychomotor hyperactivity [Recovered/Resolved]
  - Drug abuse [Recovered/Resolved]

NARRATIVE: CASE EVENT DATE: 20180609
